FAERS Safety Report 5251481-5 (Version None)
Quarter: 2007Q1

REPORT INFORMATION
  Report Type: 
  Country: None (occurrence: None)
  Receive Date: 20070228
  Receipt Date: 20060516
  Transmission Date: 20070707
  Serious: Yes (Other)
  Sender: FDA-Public Use
  Company Number: US-GLAXOSMITHKLINE-A0605825A

PATIENT
  Sex: Female

DRUGS (3)
  1. LAMICTAL [Suspect]
     Indication: BIPOLAR DISORDER
     Dosage: 400MG PER DAY
     Route: 048
     Dates: start: 20060501
  2. PROZAC [Concomitant]
  3. ANTI-PSYCHOTIC MEDICATION [Concomitant]

REACTIONS (2)
  - ANAEMIA [None]
  - RED BLOOD CELL COUNT DECREASED [None]
